FAERS Safety Report 12544122 (Version 4)
Quarter: 2019Q2

REPORT INFORMATION
  Report Type: Spontaneous
  Country: CZ (occurrence: CZ)
  Receive Date: 20160711
  Receipt Date: 20190510
  Transmission Date: 20190711
  Serious: Yes (Life-Threatening, Hospitalization, Other)
  Sender: FDA-Public Use
  Company Number: CZ-FRESENIUS KABI-FK201604168

PATIENT
  Age: 30 Year
  Sex: Female
  Weight: 72 kg

DRUGS (9)
  1. PARALEN 500SUP [Suspect]
     Active Substance: ACETAMINOPHEN
     Indication: GENERAL ANAESTHESIA
     Dosage: UNKNOWN
     Route: 054
     Dates: start: 20160621, end: 20160621
  2. RAPIFEN (IBUPROFEN) [Suspect]
     Active Substance: IBUPROFEN
     Indication: GENERAL ANAESTHESIA
     Dosage: UNKNOWN
     Route: 042
     Dates: start: 20160621, end: 20160621
  3. ATROPIN BIOTIKA [Suspect]
     Active Substance: ATROPINE
     Indication: GENERAL ANAESTHESIA
     Dosage: UNKNOWN
     Route: 065
     Dates: start: 20160621, end: 20160621
  4. CHLORID SODNY 0,9% BRAUN [Suspect]
     Active Substance: SODIUM CHLORIDE
     Indication: GENERAL ANAESTHESIA
     Dosage: UNKNOWN
     Route: 065
     Dates: start: 20160621, end: 20160621
  5. MIDAZOLAM TORREX [Suspect]
     Active Substance: MIDAZOLAM HYDROCHLORIDE
     Indication: GENERAL ANAESTHESIA
     Dosage: UNKNOWN
     Route: 065
     Dates: start: 20160621, end: 20160621
  6. NOVALGIN (METAMIZOLE SODIUM) [Suspect]
     Active Substance: METAMIZOLE SODIUM
     Indication: GENERAL ANAESTHESIA
     Dosage: UNKNOWN
     Route: 050
     Dates: start: 20160621, end: 20160621
  7. ARDEAELYTOSOL F 1/1 [Suspect]
     Active Substance: SODIUM CHLORIDE
     Indication: GENERAL ANAESTHESIA
     Dosage: UNKNOWN
     Route: 065
     Dates: start: 20160621, end: 20160621
  8. APAURIN [Suspect]
     Active Substance: DIAZEPAM
     Indication: GENERAL ANAESTHESIA
     Dosage: UNKNOWN
     Route: 042
     Dates: start: 20160621, end: 20160621
  9. PROPOFOL 1% MCT FRESENIUS [Suspect]
     Active Substance: PROPOFOL
     Indication: GENERAL ANAESTHESIA
     Dosage: UNKNOWN
     Route: 042
     Dates: start: 20160621, end: 20160621

REACTIONS (9)
  - Expired product administered [Unknown]
  - Abdominal pain [Recovered/Resolved]
  - Disseminated intravascular coagulation [Recovered/Resolved]
  - Pleural effusion [Recovered/Resolved]
  - Product quality issue [Unknown]
  - Dyspnoea [Recovered/Resolved]
  - Peritoneal haemorrhage [Recovered/Resolved]
  - Vomiting [Recovered/Resolved]
  - Dizziness [Recovered/Resolved]

NARRATIVE: CASE EVENT DATE: 20160620
